FAERS Safety Report 5858299-0 (Version None)
Quarter: 2008Q3

REPORT INFORMATION
  Report Type: 
  Country: None (occurrence: None)
  Receive Date: 20080826
  Receipt Date: 20080826
  Transmission Date: 20090109
  Serious: Yes (Hospitalization)
  Sender: FDA-Public Use
  Company Number: B0428990A

PATIENT
  Age: 7 Year
  Sex: Female

DRUGS (3)
  1. EPIVIR [Suspect]
     Indication: DRUG USE FOR UNKNOWN INDICATION
     Route: 065
  2. ZIAGEN [Suspect]
     Indication: DRUG USE FOR UNKNOWN INDICATION
     Route: 065
  3. VIRAMUNE [Suspect]
     Indication: HIV INFECTION
     Route: 065

REACTIONS (11)
  - ALANINE AMINOTRANSFERASE INCREASED [None]
  - BLOOD CREATINE PHOSPHOKINASE INCREASED [None]
  - BLOOD LACTIC ACID INCREASED [None]
  - DRUG TOXICITY [None]
  - FATIGUE [None]
  - MITOCHONDRIAL CYTOPATHY [None]
  - MOVEMENT DISORDER [None]
  - MYALGIA [None]
  - MYOCARDITIS [None]
  - MYOSITIS [None]
  - PARAINFLUENZAE VIRUS INFECTION [None]
